FAERS Safety Report 7370558-1 (Version None)
Quarter: 2011Q1

REPORT INFORMATION
  Report Type: 
  Country: None (occurrence: None)
  Receive Date: 20110323
  Receipt Date: 20110310
  Transmission Date: 20110831
  Serious: No
  Sender: FDA-Public Use
  Company Number: US-BAYER-2011-022848

PATIENT
  Age: 54 Year
  Sex: Female
  Weight: 150 kg

DRUGS (4)
  1. BUSPAR [Concomitant]
     Dosage: UNK
     Route: 048
  2. ALEVE (CAPLET) [Suspect]
     Dosage: 1 DF, UNK
     Route: 048
     Dates: start: 20110309, end: 20110309
  3. LORATADINE [Concomitant]
     Dosage: UNK
  4. LEVOTHYROXINE SODIUM [Concomitant]
     Dosage: UNK
     Route: 048

REACTIONS (4)
  - HEART RATE INCREASED [None]
  - ERYTHEMA [None]
  - NAUSEA [None]
  - FATIGUE [None]
